FAERS Safety Report 6222240-1 (Version None)
Quarter: 2009Q2

REPORT INFORMATION
  Report Type: 
  Country: None (occurrence: None)
  Receive Date: 20090611
  Receipt Date: 20090608
  Transmission Date: 20091009
  Serious: Yes (Death, Other)
  Sender: FDA-Public Use
  Company Number: PHHY2009JP22667

PATIENT
  Sex: Male

DRUGS (3)
  1. ZOMETA [Suspect]
     Indication: METASTASES TO BONE
     Route: 042
  2. DECADRON [Concomitant]
     Dosage: 1 MG
     Route: 048
     Dates: start: 20050701
  3. DOCETAXEL [Concomitant]
     Dosage: 80 MG
     Route: 041
     Dates: start: 20080509, end: 20090508

REACTIONS (5)
  - BONE DISORDER [None]
  - MALIGNANT NEOPLASM PROGRESSION [None]
  - OSTEONECROSIS [None]
  - TOOTHACHE [None]
  - WOUND DRAINAGE [None]
